FAERS Safety Report 22224924 (Version 14)
Quarter: 2024Q4

REPORT INFORMATION
  Report Type: Report from Study
  Country: CN (occurrence: CN)
  Receive Date: 20230418
  Receipt Date: 20241226
  Transmission Date: 20250115
  Serious: Yes (Hospitalization, Other)
  Sender: TAKEDA
  Company Number: CN-TAKEDA-2023TUS015980

PATIENT
  Age: 75 Year
  Sex: Female
  Weight: 42 kg

DRUGS (20)
  1. IXAZOMIB [Suspect]
     Active Substance: IXAZOMIB
     Indication: Plasma cell myeloma
     Dosage: 4 MILLIGRAM, 1/WEEK
     Dates: start: 20221105
  2. DEXAMETHASONE SODIUM PHOSPHATE [Suspect]
     Active Substance: DEXAMETHASONE SODIUM PHOSPHATE
     Indication: Plasma cell myeloma
     Dosage: 20 MILLIGRAM, QD
     Dates: start: 20221206, end: 20221206
  3. DEXAMETHASONE SODIUM PHOSPHATE [Suspect]
     Active Substance: DEXAMETHASONE SODIUM PHOSPHATE
     Dosage: 20 MILLIGRAM, QD
     Dates: start: 20221213, end: 20221227
  4. DENOSUMAB [Concomitant]
     Active Substance: DENOSUMAB
     Indication: Osteoporosis prophylaxis
     Dosage: 120 MILLIGRAM, QD
     Dates: start: 20221205, end: 20221205
  5. ESOMEPRAZOLE SODIUM [Concomitant]
     Active Substance: ESOMEPRAZOLE SODIUM
     Indication: Chemotherapy
     Dosage: 40 MILLIGRAM, QD
     Dates: start: 20221206, end: 20221208
  6. ESOMEPRAZOLE SODIUM [Concomitant]
     Active Substance: ESOMEPRAZOLE SODIUM
     Indication: Prophylaxis
  7. AMMONIUM GLYCYRRHIZATE\CYSTEINE [Concomitant]
     Active Substance: AMMONIUM GLYCYRRHIZATE\CYSTEINE
     Indication: Prophylaxis
     Dosage: 100 MILLILITER, QD
     Dates: start: 20221206, end: 20221208
  8. LACTULOSE [Concomitant]
     Active Substance: LACTULOSE
     Indication: Bowel movement irregularity
     Dosage: 15 MILLILITER, BID
     Dates: start: 20221205, end: 20221207
  9. ALFACALCIDOL [Concomitant]
     Active Substance: ALFACALCIDOL
     Indication: Osteoporosis
     Dosage: 0.25 MICROGRAM, QD
     Dates: start: 20221206, end: 20221208
  10. METHYLCOBALAMIN [Concomitant]
     Active Substance: METHYLCOBALAMIN
     Indication: Neuropathy peripheral
     Dosage: 0.5 MILLIGRAM, TID
     Dates: start: 20221206, end: 20221223
  11. VITAMIN B1 [Concomitant]
     Active Substance: THIAMINE HYDROCHLORIDE
     Indication: Neuropathy peripheral
     Dosage: 0.01 GRAM, TID
     Dates: start: 20221206, end: 20221215
  12. CEFOPERAZONE SODIUM\SULBACTAM SODIUM [Concomitant]
     Active Substance: CEFOPERAZONE SODIUM\SULBACTAM SODIUM
     Indication: Pneumonia
     Dosage: 3 GRAM
     Dates: start: 20221206, end: 20221208
  13. CILNIDIPINE [Concomitant]
     Active Substance: CILNIDIPINE
     Indication: Hypertension
     Dosage: 0.5 MILLIGRAM, QD
     Dates: start: 2016
  14. ALBUMIN PREPARED FROM HUMAN PLASMA [Concomitant]
     Indication: Prealbumin
     Dosage: 20 GRAM, QD
     Dates: start: 20221208, end: 20230103
  15. ALBUMIN PREPARED FROM HUMAN PLASMA [Concomitant]
     Indication: Blood albumin increased
  16. ALBUMIN PREPARED FROM HUMAN PLASMA [Concomitant]
     Indication: Hypoproteinaemia
  17. CEFPODOXIME PROXETIL [Concomitant]
     Active Substance: CEFPODOXIME PROXETIL
     Indication: Pneumonia
     Dosage: 0.2 GRAM, BID
     Dates: start: 20221208, end: 20221214
  18. ALBUMIN HUMAN [Concomitant]
     Active Substance: ALBUMIN HUMAN
     Indication: Hypoproteinaemia
     Dosage: 20 GRAM, QD
     Dates: start: 20221208, end: 20221228
  19. PANTOPRAZOLE SODIUM [Concomitant]
     Active Substance: PANTOPRAZOLE SODIUM
     Indication: Prophylaxis
     Dosage: 40 MILLIGRAM, QD
     Dates: start: 20221213, end: 20221214
  20. PANTOPRAZOLE SODIUM [Concomitant]
     Active Substance: PANTOPRAZOLE SODIUM
     Dosage: 40 MILLIGRAM, QD
     Dates: start: 20221220, end: 20221221

REACTIONS (21)
  - Gastroenteritis [Not Recovered/Not Resolved]
  - Hepatic failure [Recovered/Resolved]
  - Leukopenia [Recovered/Resolved]
  - Cardiac failure [Not Recovered/Not Resolved]
  - Thrombocytopenia [Recovered/Resolved]
  - Hypokalaemia [Not Recovered/Not Resolved]
  - Neuropathy peripheral [Not Recovered/Not Resolved]
  - Hypocalcaemia [Recovered/Resolved]
  - Gout [Not Recovered/Not Resolved]
  - Haematuria [Recovered/Resolved]
  - Urinary tract infection [Not Recovered/Not Resolved]
  - Serum ferritin increased [Not Recovered/Not Resolved]
  - C-reactive protein increased [Recovered/Resolved]
  - Off label use [Recovered/Resolved]
  - Lymphocyte count decreased [Not Recovered/Not Resolved]
  - White blood cell count decreased [Recovered/Resolved]
  - Conjunctivitis [Recovered/Resolved]
  - Dry eye [Recovered/Resolved]
  - Neutrophil count decreased [Recovered/Resolved]
  - Upper respiratory tract infection [Recovered/Resolved]
  - Platelet count decreased [Recovered/Resolved]

NARRATIVE: CASE EVENT DATE: 20221206
